FAERS Safety Report 18606881 (Version 1)
Quarter: 2020Q4

REPORT INFORMATION
  Report Type: Report from Study
  Country: None (occurrence: CA)
  Receive Date: 20201212
  Receipt Date: 20201212
  Transmission Date: 20210114
  Serious: Yes (Other)
  Sender: FDA-Public Use
  Company Number: CA-ABBVIE-20K-028-3683470-00

PATIENT
  Sex: Male

DRUGS (1)
  1. RINVOQ [Suspect]
     Active Substance: UPADACITINIB
     Indication: PRODUCT USED FOR UNKNOWN INDICATION
     Route: 048

REACTIONS (5)
  - Eyelid margin crusting [Unknown]
  - Dry eye [Unknown]
  - Blindness transient [Unknown]
  - Sinus headache [Not Recovered/Not Resolved]
  - Grief reaction [Unknown]

NARRATIVE: CASE EVENT DATE: 2020
